FAERS Safety Report 5356164-9 (Version None)
Quarter: 2007Q2

REPORT INFORMATION
  Report Type: 
  Country: None (occurrence: None)
  Receive Date: 20070613
  Receipt Date: 20070605
  Transmission Date: 20071010
  Serious: Yes (Hospitalization)
  Sender: FDA-Public Use
  Company Number: FR-ABBOTT-07P-056-0364839-00

PATIENT
  Age: 45 Year
  Sex: Female
  Weight: 66 kg

DRUGS (10)
  1. KALETRA [Suspect]
     Indication: HIV INFECTION
     Route: 048
     Dates: start: 20040701, end: 20060323
  2. KALETRA [Suspect]
     Route: 048
     Dates: start: 20060323
  3. KALETRA [Suspect]
     Route: 048
  4. TENOFOVIR DISOPROXIL [Suspect]
     Indication: HIV INFECTION
     Route: 048
     Dates: start: 20040701, end: 20060323
  5. TENOFOVIR DISOPROXIL [Suspect]
     Route: 048
     Dates: start: 20060323
  6. TENOFOVIR DISOPROXIL [Suspect]
     Dates: start: 20040701, end: 20060323
  7. CALCIUM FOLINATE [Concomitant]
     Indication: TOXOPLASMOSIS
     Route: 048
  8. PYRIMETHAMINE TAB [Concomitant]
     Indication: TOXOPLASMOSIS
     Route: 048
  9. METHADONE HCL [Concomitant]
     Indication: DRUG DEPENDENCE
     Route: 048
  10. SAQUINAVIR [Concomitant]
     Indication: HIV INFECTION
     Route: 048

REACTIONS (4)
  - AMAUROSIS FUGAX [None]
  - HEADACHE [None]
  - HYPERHIDROSIS [None]
  - NYSTAGMUS [None]
